FAERS Safety Report 8456563-2 (Version None)
Quarter: 2012Q2

REPORT INFORMATION
  Report Type: 
  Country: None (occurrence: None)
  Receive Date: 20120621
  Receipt Date: 20120611
  Transmission Date: 20120825
  Serious: Yes (Disabling, Other)
  Sender: FDA-Public Use
  Company Number: US-MERCK-1111USA02492

PATIENT
  Age: 55 Year
  Sex: Female
  Weight: 45 kg

DRUGS (3)
  1. BONIVA [Suspect]
     Indication: BONE LOSS
     Route: 048
     Dates: start: 20060101, end: 20100501
  2. FOSAMAX [Suspect]
     Indication: BONE LOSS
     Route: 048
     Dates: start: 20000101, end: 20060101
  3. HORMONES (UNSPECIFIED) [Concomitant]
     Route: 065
     Dates: start: 19900101, end: 20060301

REACTIONS (46)
  - DENTAL CARIES [None]
  - FISTULA [None]
  - NASAL SEPTUM DEVIATION [None]
  - IMPAIRED HEALING [None]
  - PULMONARY OEDEMA [None]
  - VASODILATATION [None]
  - EXOSTOSIS [None]
  - GASTROINTESTINAL PAIN [None]
  - UTERINE LEIOMYOMA [None]
  - TREMOR [None]
  - ORAL INFECTION [None]
  - ORAL DISORDER [None]
  - HAEMORRHAGIC INFARCTION [None]
  - NEURALGIA [None]
  - THROMBOSIS [None]
  - FALL [None]
  - BACK PAIN [None]
  - HYPOTHYROIDISM [None]
  - TOOTH DISORDER [None]
  - TEMPOROMANDIBULAR JOINT SYNDROME [None]
  - VOMITING [None]
  - SPINAL FRACTURE [None]
  - TOOTH FRACTURE [None]
  - LEFT VENTRICULAR FAILURE [None]
  - HEADACHE [None]
  - SCOLIOSIS [None]
  - RADICULOPATHY [None]
  - PRESYNCOPE [None]
  - EPISTAXIS [None]
  - ATTENTION DEFICIT/HYPERACTIVITY DISORDER [None]
  - RIB FRACTURE [None]
  - FUNGAL INFECTION [None]
  - OSTEOMYELITIS [None]
  - ARTHROPATHY [None]
  - ATRIAL FIBRILLATION [None]
  - DIZZINESS [None]
  - PLEURAL EFFUSION [None]
  - LOCAL SWELLING [None]
  - DIARRHOEA [None]
  - BONE LESION [None]
  - CARDIAC DISORDER [None]
  - LYMPHADENOPATHY [None]
  - TOOTH ABSCESS [None]
  - AMNESIA [None]
  - OSTEONECROSIS OF JAW [None]
  - NAUSEA [None]
